FAERS Safety Report 11013846 (Version 2)
Quarter: 2015Q2

REPORT INFORMATION
  Report Type: Spontaneous
  Country: US (occurrence: US)
  Receive Date: 20150412
  Receipt Date: 20150525
  Transmission Date: 20150821
  Serious: No
  Sender: FDA-Public Use
  Company Number: US-JNJFOC-20140615899

PATIENT

DRUGS (1)
  1. ULTRACET [Suspect]
     Active Substance: ACETAMINOPHEN\TRAMADOL HYDROCHLORIDE
     Indication: PRODUCT USED FOR UNKNOWN INDICATION
     Dosage: (1 TABLET; 37.5 MG/325 MG) TAKEN EVERY 6 HOURS (18 TABLETS TOTAL)
     Route: 065

REACTIONS (9)
  - Dizziness [Unknown]
  - Feeling hot [Unknown]
  - Somnolence [Unknown]
  - Vomiting [Unknown]
  - Infrequent bowel movements [Unknown]
  - Nausea [Unknown]
  - Pruritus [Unknown]
  - Headache [Unknown]
  - Abdominal pain [Unknown]
